FAERS Safety Report 4913106-5 (Version None)
Quarter: 2006Q1

REPORT INFORMATION
  Report Type: 
  Country: None (occurrence: None)
  Receive Date: 20060210
  Receipt Date: 20060201
  Transmission Date: 20060701
  Serious: Yes (Other)
  Sender: FDA-Public Use
  Company Number: S05-USA-04309-01

PATIENT
  Age: 30 Year
  Sex: Female
  Weight: 139.2543 kg

DRUGS (8)
  1. LEXAPRO [Suspect]
     Indication: DEPRESSION
     Dosage: 15 MG QD PO
     Route: 048
     Dates: start: 20050101, end: 20050909
  2. LEXAPRO [Suspect]
     Indication: DEPRESSION
     Dosage: 20 MG QD PO
     Route: 048
     Dates: start: 20050829, end: 20050101
  3. LEXAPRO [Suspect]
     Indication: DEPRESSION
     Dosage: 20 MG QD PO
     Route: 048
     Dates: end: 20050827
  4. LEXAPRO [Suspect]
     Indication: DEPRESSION
     Dosage: 10 MG QD PO
     Route: 048
     Dates: start: 20030701, end: 20031101
  5. LEXAPRO [Suspect]
     Indication: DEPRESSION
     Dosage: 20 MG QD PO
     Route: 048
     Dates: start: 20031101
  6. DEPO-PROVERA SUSPENSION/INJ [Concomitant]
  7. FASTIN [Concomitant]
  8. PREVACID [Concomitant]

REACTIONS (26)
  - ABNORMAL DREAMS [None]
  - AGEUSIA [None]
  - AMNESIA [None]
  - ANOSMIA [None]
  - ANXIETY [None]
  - ASTHENIA [None]
  - CEREBRAL DISORDER [None]
  - CHOLECYSTECTOMY [None]
  - CONFUSIONAL STATE [None]
  - DIZZINESS [None]
  - DRUG DOSE OMISSION [None]
  - FAECAL INCONTINENCE [None]
  - FEELING ABNORMAL [None]
  - HEADACHE [None]
  - HEPATIC STEATOSIS [None]
  - HYPOAESTHESIA [None]
  - IMPAIRED WORK ABILITY [None]
  - INSOMNIA [None]
  - NAUSEA [None]
  - OVARIAN CYST [None]
  - PAIN [None]
  - PALPITATIONS [None]
  - PARAESTHESIA [None]
  - TENSION HEADACHE [None]
  - TERATOMA [None]
  - VISION BLURRED [None]
